FAERS Safety Report 19614097 (Version 1)
Quarter: 2021Q3

REPORT INFORMATION
  Report Type: Spontaneous
  Country: PL (occurrence: PL)
  Receive Date: 20210727
  Receipt Date: 20210727
  Transmission Date: 20211014
  Serious: Yes (Other)
  Sender: FDA-Public Use
  Company Number: PL-TEVA-2021-PL-1936531

PATIENT
  Sex: Female

DRUGS (1)
  1. OLFEN UNO [Suspect]
     Active Substance: DICLOFENAC SODIUM
     Route: 065

REACTIONS (4)
  - Rash [Unknown]
  - Syncope [Unknown]
  - Renal pain [Unknown]
  - Abdominal pain [Unknown]
